FAERS Safety Report 22324142 (Version 1)
Quarter: 2023Q2

REPORT INFORMATION
  Report Type: Spontaneous
  Country: US (occurrence: US)
  Receive Date: 20230516
  Receipt Date: 20230516
  Transmission Date: 20230721
  Serious: No
  Sender: FDA-Public Use
  Company Number: US-UNITED THERAPEUTICS-UNT-2023-004371

PATIENT
  Sex: Female
  Weight: 95.692 kg

DRUGS (5)
  1. TYVASO [Suspect]
     Active Substance: TREPROSTINIL
     Indication: Pulmonary arterial hypertension
     Dosage: 72 ?G, QID
  2. TYVASO [Suspect]
     Active Substance: TREPROSTINIL
     Dosage: UNK
     Dates: start: 20220613
  3. OFEV [Suspect]
     Active Substance: NINTEDANIB
     Indication: Idiopathic pulmonary fibrosis
     Dosage: UNK (RESTARTED)
     Route: 065
     Dates: start: 202301
  4. OFEV [Suspect]
     Active Substance: NINTEDANIB
     Dosage: UNK (STOP)
     Route: 065
  5. OFEV [Suspect]
     Active Substance: NINTEDANIB
     Dosage: 300 MG, QD
     Route: 048
     Dates: start: 20220629

REACTIONS (1)
  - Hepatic enzyme increased [Unknown]
